FAERS Safety Report 6154864-4 (Version None)
Quarter: 2009Q2

REPORT INFORMATION
  Report Type: 
  Country: None (occurrence: None)
  Receive Date: 20090414
  Receipt Date: 20090402
  Transmission Date: 20091009
  Serious: Yes (Disabling, Other)
  Sender: FDA-Public Use
  Company Number: US-PFIZER INC-2009193211

PATIENT
  Sex: Female
  Weight: 58.05 kg

DRUGS (4)
  1. LYRICA [Suspect]
     Indication: HERPES ZOSTER OTICUS
     Dosage: 500 MG, UNK
     Route: 048
     Dates: start: 20081001, end: 20090331
  2. TRAZODONE [Concomitant]
     Dosage: UNK
  3. PREMPRO [Concomitant]
     Dosage: UNK
  4. NEURONTIN [Concomitant]
     Dosage: UNK

REACTIONS (9)
  - ALOPECIA [None]
  - AMNESIA [None]
  - COGNITIVE DISORDER [None]
  - CONTUSION [None]
  - FALL [None]
  - IMPAIRED WORK ABILITY [None]
  - PARALYSIS [None]
  - SUICIDAL IDEATION [None]
  - TREMOR [None]
